FAERS Safety Report 10079800 (Version 2)
Quarter: 2014Q2

REPORT INFORMATION
  Report Type: Spontaneous
  Country: CN (occurrence: CN)
  Receive Date: 20140415
  Receipt Date: 20140513
  Transmission Date: 20141212
  Serious: Yes (Hospitalization)
  Sender: FDA-Public Use
  Company Number: CN-GLAXOSMITHKLINE-B0985797A

PATIENT
  Age: 35 Year
  Sex: Male
  Weight: 62 kg

DRUGS (3)
  1. HEPTODIN [Suspect]
     Indication: HEPATITIS B
     Dosage: 1TAB PER DAY
     Route: 048
     Dates: start: 201311
  2. DIAMMONIUM GLYCYRRHIZINATE [Suspect]
     Indication: PROPHYLAXIS
     Dosage: 3CAP THREE TIMES PER DAY
     Route: 048
  3. TRADITIONAL CHINESE MEDICINE [Suspect]
     Indication: PROPHYLAXIS
     Dosage: 4CAP THREE TIMES PER DAY
     Route: 048

REACTIONS (5)
  - Hepatic function abnormal [Recovered/Resolved]
  - Transaminases increased [Recovered/Resolved]
  - Viral load increased [Recovered/Resolved]
  - Drug ineffective [Recovered/Resolved]
  - Product quality issue [Unknown]
